FAERS Safety Report 9290215 (Version 1)
Quarter: 2013Q2

REPORT INFORMATION
  Report Type: Spontaneous
  Country: AU (occurrence: AU)
  Receive Date: 20130515
  Receipt Date: 20130515
  Transmission Date: 20140414
  Serious: Yes (Hospitalization)
  Sender: FDA-Public Use
  Company Number: AU-AMGEN-AUSSP2013021948

PATIENT
  Age: 61 Year
  Sex: Female

DRUGS (8)
  1. PROLIA [Suspect]
     Indication: PRODUCT USED FOR UNKNOWN INDICATION
     Dosage: 60 MG, UNK
     Dates: start: 20130228
  2. WARFARIN [Concomitant]
  3. PANTOPRAZOLE [Concomitant]
     Dosage: 40 MG, QD
  4. SIMVASTATIN [Concomitant]
     Dosage: 40 MG, QD
  5. TELMISARTAN [Concomitant]
     Dosage: 12.5 MG, QD
  6. OXYCONTIN [Concomitant]
     Dosage: 10 MG, BID
  7. SPIRIVA [Concomitant]
     Dosage: 1, QD
  8. SYMBICORT [Concomitant]
     Dosage: 2 PUFF, BID

REACTIONS (4)
  - Hypocalcaemia [Recovered/Resolved]
  - Arthritis [Not Recovered/Not Resolved]
  - Gout [Unknown]
  - Chondrocalcinosis pyrophosphate [Unknown]
